FAERS Safety Report 10910616 (Version 2)
Quarter: 2015Q2

REPORT INFORMATION
  Report Type: Spontaneous
  Country: US (occurrence: US)
  Receive Date: 20150312
  Receipt Date: 20150410
  Transmission Date: 20150821
  Serious: Yes (Hospitalization)
  Sender: FDA-Public Use
  Company Number: US-JNJFOC-20150308824

PATIENT
  Age: 84 Year
  Sex: Male

DRUGS (7)
  1. IMBRUVICA [Suspect]
     Active Substance: IBRUTINIB
     Indication: CHRONIC LYMPHOCYTIC LEUKAEMIA
     Route: 048
     Dates: start: 201502
  2. ALLOPURINOL. [Concomitant]
     Active Substance: ALLOPURINOL
  3. DIGOXIN. [Concomitant]
     Active Substance: DIGOXIN
  4. IMBRUVICA [Suspect]
     Active Substance: IBRUTINIB
     Indication: CHRONIC LYMPHOCYTIC LEUKAEMIA
     Route: 048
     Dates: start: 20140925, end: 201502
  5. XARELTO [Suspect]
     Active Substance: RIVAROXABAN
     Indication: PALPITATIONS
     Dates: end: 201504
  6. LISINOPRIL. [Concomitant]
     Active Substance: LISINOPRIL
  7. BABY ASPIRIN [Concomitant]
     Active Substance: ASPIRIN

REACTIONS (7)
  - Contusion [Recovering/Resolving]
  - Incorrect dose administered [Recovered/Resolved]
  - Conduction disorder [Unknown]
  - Heart rate abnormal [Unknown]
  - Dizziness [Unknown]
  - Hernia [Unknown]
  - Palpitations [Unknown]

NARRATIVE: CASE EVENT DATE: 20140925
